FAERS Safety Report 5411980-X (Version None)
Quarter: 2007Q3

REPORT INFORMATION
  Report Type: 
  Country: None (occurrence: None)
  Receive Date: 20070810
  Receipt Date: 20070810
  Transmission Date: 20080115
  Serious: No
  Sender: FDA-Public Use
  Company Number: None

PATIENT
  Age: 70 Year
  Sex: Female
  Weight: 62 kg

DRUGS (1)
  1. GEMZAR [Suspect]
     Indication: OVARIAN CANCER
     Dosage: 1200 MG/M2  DAYS 1 AND 8  IV DRIP
     Route: 041
     Dates: start: 20070116, end: 20070618

REACTIONS (2)
  - DEAFNESS BILATERAL [None]
  - TINNITUS [None]
